FAERS Safety Report 20937935 (Version 1)
Quarter: 2022Q2

REPORT INFORMATION
  Report Type: Spontaneous
  Country: US (occurrence: None)
  Receive Date: 20220608
  Receipt Date: 20220608
  Transmission Date: 20220721
  Serious: Yes (Hospitalization)
  Sender: FDA-Public Use
  Company Number: None

PATIENT
  Age: 82 Year
  Sex: Male
  Weight: 67.13 kg

DRUGS (7)
  1. LENALIDOMIDE [Suspect]
     Active Substance: LENALIDOMIDE
  2. ASPIRIN [Concomitant]
  3. COREG [Concomitant]
  4. ENALAPRIL [Concomitant]
  5. METFORMIN [Concomitant]
  6. SIMVASTATIN [Concomitant]
  7. VELCADE [Concomitant]

REACTIONS (1)
  - Disease progression [None]
